FAERS Safety Report 18389009 (Version 1)
Quarter: 2020Q4

REPORT INFORMATION
  Report Type: Report from Study
  Country: US (occurrence: US)
  Receive Date: 20201016
  Receipt Date: 20201016
  Transmission Date: 20210114
  Serious: Yes (Hospitalization, Other)
  Sender: FDA-Public Use
  Company Number: US-AUROBINDO-AUR-APL-2020-052207

PATIENT
  Age: 66 Year
  Sex: Male
  Weight: 83.3 kg

DRUGS (2)
  1. EVOMELA [Suspect]
     Active Substance: MELPHALAN HYDROCHLORIDE
     Indication: STEM CELL TRANSPLANT
     Dosage: 100 MILLIGRAM/SQ. METER, ONCE A DAY
     Route: 042
     Dates: start: 20200928
  2. EVOMELA [Suspect]
     Active Substance: MELPHALAN HYDROCHLORIDE
     Dosage: 100 MG/M2, ONCE A DAY
     Route: 042
     Dates: start: 20200929

REACTIONS (1)
  - Febrile neutropenia [Unknown]
